FAERS Safety Report 21920787 (Version 14)
Quarter: 2023Q4

REPORT INFORMATION
  Report Type: Spontaneous
  Country: US (occurrence: US)
  Receive Date: 20230127
  Receipt Date: 20231228
  Transmission Date: 20240109
  Serious: Yes (Hospitalization, Other)
  Sender: FDA-Public Use
  Company Number: US-PFIZER INC-PV202300015516

PATIENT
  Age: 72 Year
  Sex: Female
  Weight: 88.45 kg

DRUGS (3)
  1. IBRANCE [Suspect]
     Active Substance: PALBOCICLIB
     Indication: Breast cancer female
     Dosage: 100 MG, CYCLIC (ONCE DAILY FOR TAKE ON DAYS 1-21 OF A 28-DAY CYCLE. TAKE WITH OR WITHOUT FOOD)
     Route: 048
     Dates: start: 2022
  2. IBRANCE [Suspect]
     Active Substance: PALBOCICLIB
     Indication: Bone cancer
     Dosage: 75 MG, CYCLIC (EVERYDAY FOR 21 DAYS)
     Route: 048
     Dates: start: 202302
  3. IBRANCE [Suspect]
     Active Substance: PALBOCICLIB
     Dosage: 75 MG, CYCLIC (ONCE ONCE FOR 21 DAYS ON AND 7 DAYS OFF)
     Route: 048
     Dates: end: 20230727

REACTIONS (16)
  - Somnolence [Unknown]
  - Platelet count decreased [Not Recovered/Not Resolved]
  - Pneumonia [Recovered/Resolved]
  - Product prescribing error [Unknown]
  - Depression [Unknown]
  - Hypoacusis [Unknown]
  - Abdominal pain upper [Unknown]
  - Emotional disorder [Unknown]
  - Illness [Not Recovered/Not Resolved]
  - Confusional state [Unknown]
  - Memory impairment [Unknown]
  - Arthritis [Unknown]
  - Fatigue [Unknown]
  - Epistaxis [Recovered/Resolved]
  - Fall [Unknown]
  - Blood glucose increased [Not Recovered/Not Resolved]

NARRATIVE: CASE EVENT DATE: 20220101
